FAERS Safety Report 5665160-3 (Version None)
Quarter: 2008Q1

REPORT INFORMATION
  Report Type: 
  Country: None (occurrence: None)
  Receive Date: 20080314
  Receipt Date: 20080303
  Transmission Date: 20080703
  Serious: Yes (Hospitalization, Other)
  Sender: FDA-Public Use
  Company Number: GB-PFIZER INC-2008022152

PATIENT
  Age: 38 Year
  Sex: Female
  Weight: 41 kg

DRUGS (7)
  1. RIFABUTIN [Suspect]
     Indication: MYCOBACTERIUM AVIUM COMPLEX INFECTION
     Route: 048
  2. PROLEUKIN [Suspect]
     Indication: INTERLEUKIN THERAPY
     Dosage: TEXT:4.5MIU
     Dates: start: 20080201, end: 20080210
  3. AMIKACIN [Concomitant]
     Route: 042
  4. CIPROFLOXACIN [Concomitant]
     Route: 048
  5. CLARITHROMYCIN [Concomitant]
     Route: 048
  6. KALETRA [Concomitant]
     Route: 048
  7. ABACAVIR SULFATE/LAMIVUDINE [Concomitant]
     Route: 048

REACTIONS (2)
  - EYE PAIN [None]
  - IRIDOCYCLITIS [None]
